FAERS Safety Report 25806956 (Version 1)
Quarter: 2025Q3

REPORT INFORMATION
  Report Type: Other
  Country: JP (occurrence: JP)
  Receive Date: 20250916
  Receipt Date: 20250916
  Transmission Date: 20251020
  Serious: Yes (Hospitalization, Other)
  Sender: NODEN PHARMA
  Company Number: JP-NODEN PHARMA DAC- NOD-2021-000002

PATIENT
  Age: 18 Year
  Sex: Female

DRUGS (5)
  1. RASILEZ [Suspect]
     Active Substance: ALISKIREN
     Indication: Product used for unknown indication
     Dosage: 150 MILLIGRAM, QD,
     Route: 048
  2. OLMESARTAN [Concomitant]
     Active Substance: OLMESARTAN
     Indication: Product used for unknown indication
     Route: 065
  3. PREDNISOLONE [Concomitant]
     Active Substance: PREDNISOLONE
     Indication: Takayasu^s arteritis
  4. PREDNISOLONE [Concomitant]
     Active Substance: PREDNISOLONE
  5. METHYLPREDNISOLONE [Concomitant]
     Active Substance: METHYLPREDNISOLONE
     Indication: Takayasu^s arteritis

REACTIONS (2)
  - Liver injury [Unknown]
  - Rash [Unknown]
